FAERS Safety Report 6833396-1 (Version None)
Quarter: 2010Q3

REPORT INFORMATION
  Report Type: 
  Country: None (occurrence: None)
  Receive Date: 20100712
  Receipt Date: 20070319
  Transmission Date: 20110219
  Serious: No
  Sender: FDA-Public Use
  Company Number: US-PFIZER INC-2007022368

PATIENT
  Sex: Male
  Weight: 81.65 kg

DRUGS (1)
  1. CHANTIX [Suspect]
     Indication: SMOKING CESSATION THERAPY
     Dates: start: 20070301

REACTIONS (6)
  - DRUG DOSE OMISSION [None]
  - EAR DISORDER [None]
  - MALAISE [None]
  - NASAL CONGESTION [None]
  - OROPHARYNGEAL PAIN [None]
  - SINUS DISORDER [None]
